FAERS Safety Report 4757430-8 (Version None)
Quarter: 2005Q3

REPORT INFORMATION
  Report Type: 
  Country: None (occurrence: None)
  Receive Date: 20050831
  Receipt Date: 20050817
  Transmission Date: 20060218
  Serious: Yes (Hospitalization)
  Sender: FDA-Public Use
  Company Number: 200517361GDDC

PATIENT
  Age: 30 Year
  Sex: Male

DRUGS (1)
  1. DESMOPRESSIN [Suspect]
     Indication: NOCTURIA
     Dosage: DOSE: UNK

REACTIONS (3)
  - COMA [None]
  - HYPONATRAEMIA [None]
  - INAPPROPRIATE ANTIDIURETIC HORMONE SECRETION [None]
